FAERS Safety Report 14957072 (Version 1)
Quarter: 2018Q2

REPORT INFORMATION
  Report Type: Spontaneous
  Country: US (occurrence: US)
  Receive Date: 20180509
  Receipt Date: 20180509
  Transmission Date: 20180711
  Serious: Yes (Death)
  Sender: FDA-Public Use
  Company Number: None

PATIENT
  Age: 50 Year
  Sex: Male

DRUGS (9)
  1. INTRATHECAL METHOTREXATE 12.5MG [Concomitant]
     Dates: start: 20120917, end: 20130804
  2. ALPRAZOLAM 0.25MG [Concomitant]
     Active Substance: ALPRAZOLAM
  3. DIAZEPAM 5MG [Concomitant]
     Active Substance: DIAZEPAM
  4. METHADONE [Concomitant]
     Active Substance: METHADONE HYDROCHLORIDE
  5. LEXAPRO [Concomitant]
     Active Substance: ESCITALOPRAM OXALATE
  6. WARFARIN 5MG [Concomitant]
     Active Substance: WARFARIN
  7. TECFIDERA [Suspect]
     Active Substance: DIMETHYL FUMARATE
     Indication: MULTIPLE SCLEROSIS
     Route: 048
     Dates: start: 20130515, end: 20130910
  8. BACLOFEN 20MG [Concomitant]
     Active Substance: BACLOFEN
  9. TIZANIDINE 4MG [Concomitant]
     Active Substance: TIZANIDINE

REACTIONS (6)
  - Muscle spasticity [None]
  - Unresponsive to stimuli [None]
  - Quadriplegia [None]
  - Pulmonary function test abnormal [None]
  - Dyspnoea [None]
  - Pulmonary embolism [None]

NARRATIVE: CASE EVENT DATE: 20140526
